FAERS Safety Report 25132246 (Version 1)
Quarter: 2025Q1

REPORT INFORMATION
  Report Type: Report from Study
  Country: IT (occurrence: IT)
  Receive Date: 20250328
  Receipt Date: 20250328
  Transmission Date: 20250408
  Serious: Yes (Other)
  Sender: ACCORD
  Company Number: None

PATIENT
  Age: 80 Year
  Sex: Male

DRUGS (5)
  1. ENTECAVIR [Suspect]
     Active Substance: ENTECAVIR
     Indication: Hepatitis B
     Dosage: THE PATIENT TAKES ENTECAVIR 0.5 MG, 1 TIME A DAY.
     Dates: start: 202411, end: 20250127
  2. RUXOLITINIB [Concomitant]
     Active Substance: RUXOLITINIB
     Indication: Myelofibrosis
     Dates: start: 20241111
  3. BISOPROLOL FUMARATE [Concomitant]
     Active Substance: BISOPROLOL FUMARATE
     Indication: Hypertension
  4. TAMSULOSIN [Concomitant]
     Active Substance: TAMSULOSIN
     Indication: Benign prostatic hyperplasia
  5. WARFARIN [Concomitant]
     Active Substance: WARFARIN
     Indication: Atrial fibrillation

REACTIONS (6)
  - Decreased appetite [Recovering/Resolving]
  - Diarrhoea [Recovering/Resolving]
  - Vomiting [Recovered/Resolved]
  - Weight decreased [Unknown]
  - Feeding disorder [Unknown]
  - Renal impairment [Unknown]

NARRATIVE: CASE EVENT DATE: 20241231
